FAERS Safety Report 9894213 (Version 2)
Quarter: 2014Q2

REPORT INFORMATION
  Report Type: Spontaneous
  Country: US (occurrence: US)
  Receive Date: 20140213
  Receipt Date: 20140513
  Transmission Date: 20141212
  Serious: Yes (Other)
  Sender: FDA-Public Use
  Company Number: US-BAYER-2014-022828

PATIENT
  Sex: Female
  Weight: 73.92 kg

DRUGS (5)
  1. MIRENA [Suspect]
     Dosage: 20 MCG/24HR, CONT
     Route: 015
  2. FLEXERIL [Concomitant]
  3. ULTRAM [Concomitant]
  4. CELEXA [Concomitant]
  5. NEURONTIN [Concomitant]

REACTIONS (7)
  - Device failure [None]
  - Embedded device [None]
  - Pregnancy with contraceptive device [Recovered/Resolved]
  - Drug ineffective [None]
  - Injury [None]
  - Pain [None]
  - Emotional distress [None]
